FAERS Safety Report 23975703 (Version 7)
Quarter: 2024Q3

REPORT INFORMATION
  Report Type: Report from Study
  Country: BR (occurrence: BR)
  Receive Date: 20240614
  Receipt Date: 20240718
  Transmission Date: 20241017
  Serious: Yes (Other)
  Sender: JOHNSON AND JOHNSON
  Company Number: BR-JNJFOC-20240618966

PATIENT
  Age: 56 Year
  Sex: Female
  Weight: 90 kg

DRUGS (7)
  1. SPRAVATO [Suspect]
     Active Substance: ESKETAMINE
     Indication: Depression
     Dates: start: 20240603, end: 20240603
  2. SPRAVATO [Suspect]
     Active Substance: ESKETAMINE
     Dosage: THERAPY START DATE 05-JUN-2024
  3. SPRAVATO [Suspect]
     Active Substance: ESKETAMINE
     Dates: start: 20240610
  4. SPRAVATO [Suspect]
     Active Substance: ESKETAMINE
     Dates: start: 20240612
  5. SPRAVATO [Suspect]
     Active Substance: ESKETAMINE
     Dates: start: 20240617
  6. SPRAVATO [Suspect]
     Active Substance: ESKETAMINE
     Dates: start: 20240624
  7. SPRAVATO [Suspect]
     Active Substance: ESKETAMINE
     Dates: start: 20240701

REACTIONS (13)
  - Blood pressure increased [Recovered/Resolved]
  - Throat tightness [Recovered/Resolved]
  - Throat irritation [Recovered/Resolved]
  - Somnolence [Recovered/Resolved]
  - Lip swelling [Recovered/Resolved]
  - Dizziness [Recovered/Resolved]
  - Heart rate increased [Recovered/Resolved]
  - Vertigo [Recovered/Resolved]
  - Dry mouth [Unknown]
  - Oropharyngeal discomfort [Unknown]
  - Taste disorder [Recovered/Resolved]
  - Nausea [Recovered/Resolved]
  - Peripheral coldness [Unknown]

NARRATIVE: CASE EVENT DATE: 20240101
